FAERS Safety Report 7578958-1 (Version None)
Quarter: 2011Q2

REPORT INFORMATION
  Report Type: 
  Country: None (occurrence: None)
  Receive Date: 20110628
  Receipt Date: 20110623
  Transmission Date: 20111010
  Serious: Yes (Hospitalization, Other)
  Sender: FDA-Public Use
  Company Number: IN-PFIZER INC-2011111352

PATIENT
  Age: 54 Year
  Sex: Male

DRUGS (4)
  1. VANCOMYCIN HCL [Suspect]
     Indication: CELLULITIS
     Dosage: UNK
  2. HEPARIN [Concomitant]
     Indication: PROPHYLAXIS
  3. PIPERACILLIN AND TAZOBACTAM [Suspect]
     Indication: CELLULITIS
  4. LEVOFLOXACIN [Concomitant]
     Indication: CELLULITIS

REACTIONS (7)
  - URINARY CASTS [None]
  - BLOOD CREATININE INCREASED [None]
  - THROMBOCYTOPENIA [None]
  - OLIGURIA [None]
  - PETECHIAE [None]
  - RENAL FAILURE ACUTE [None]
  - RENAL TUBULAR NECROSIS [None]
